FAERS Safety Report 16331511 (Version 2)
Quarter: 2019Q3

REPORT INFORMATION
  Report Type: Spontaneous
  Country: US (occurrence: US)
  Receive Date: 20190520
  Receipt Date: 20190705
  Transmission Date: 20191004
  Serious: No
  Sender: FDA-Public Use
  Company Number: US-BEH-2019102476

PATIENT
  Age: 22 Month
  Sex: Male

DRUGS (1)
  1. HIZENTRA [Suspect]
     Active Substance: HUMAN IMMUNOGLOBULIN G
     Indication: PRODUCT USED FOR UNKNOWN INDICATION
     Dosage: 2 G, QW
     Route: 058
     Dates: start: 20190122

REACTIONS (2)
  - Infusion site swelling [Not Recovered/Not Resolved]
  - Headache [Not Recovered/Not Resolved]
